FAERS Safety Report 11716583 (Version 1)
Quarter: 2015Q4

REPORT INFORMATION
  Report Type: Spontaneous
  Country: FR (occurrence: FR)
  Receive Date: 20151109
  Receipt Date: 20151109
  Transmission Date: 20160304
  Serious: Yes (Other)
  Sender: FDA-Public Use
  Company Number: FR-BAYER-2015-461672

PATIENT
  Age: 59 Year
  Sex: Male

DRUGS (9)
  1. CILASTATIN [Concomitant]
     Active Substance: CILASTATIN
     Indication: ESCHERICHIA INFECTION
  2. CIPROFLOXACIN. [Suspect]
     Active Substance: CIPROFLOXACIN
     Indication: POLYOMAVIRUS-ASSOCIATED NEPHROPATHY
  3. LEFLUNOMIDE. [Suspect]
     Active Substance: LEFLUNOMIDE
     Indication: POLYOMAVIRUS-ASSOCIATED NEPHROPATHY
  4. LEFLUNOMIDE. [Suspect]
     Active Substance: LEFLUNOMIDE
     Indication: BK VIRUS INFECTION
     Dosage: UNK
     Dates: start: 201309
  5. MARIBAVIR [Concomitant]
     Active Substance: MARIBAVIR
     Indication: PATHOGEN RESISTANCE
  6. MARIBAVIR [Concomitant]
     Active Substance: MARIBAVIR
     Indication: CYTOMEGALOVIRUS INFECTION
  7. CIPROFLOXACIN. [Suspect]
     Active Substance: CIPROFLOXACIN
     Indication: BK VIRUS INFECTION
     Dosage: UNK
     Dates: start: 201309
  8. IMIPENEM [Concomitant]
     Active Substance: IMIPENEM
     Indication: ESCHERICHIA INFECTION
  9. FOSCAVIR [Concomitant]
     Active Substance: FOSCARNET SODIUM
     Indication: CYTOMEGALOVIRUS INFECTION

REACTIONS (2)
  - Off label use [None]
  - Thrombocytopenia [Recovered/Resolved]
